FAERS Safety Report 9846906 (Version 3)
Quarter: 2014Q2

REPORT INFORMATION
  Report Type: Spontaneous
  Country: US (occurrence: US)
  Receive Date: 20140127
  Receipt Date: 20140501
  Transmission Date: 20141212
  Serious: Yes (Other)
  Sender: FDA-Public Use
  Company Number: US-PFIZER INC-2014021793

PATIENT
  Age: 60 Year
  Sex: Female

DRUGS (8)
  1. LYRICA [Suspect]
     Dosage: 200 MG, 2X/DAY
     Route: 048
  2. AMLODIPINE [Concomitant]
     Dosage: UNK
  3. CLOPIDOGREL [Concomitant]
     Dosage: UNK
  4. GLIPIZIDE [Concomitant]
     Dosage: UNK
  5. CARVEDILOL [Concomitant]
     Dosage: UNK
  6. PRAVASTATIN [Concomitant]
     Dosage: UNK
  7. PRO-AIR [Concomitant]
     Dosage: UNK
  8. ASPIRIN [Concomitant]
     Dosage: UNK

REACTIONS (3)
  - Ischaemic stroke [Unknown]
  - Hemiparesis [Unknown]
  - Drug prescribing error [Unknown]
